FAERS Safety Report 10647048 (Version 2)
Quarter: 2014Q4

REPORT INFORMATION
  Report Type: Spontaneous
  Country: US (occurrence: US)
  Receive Date: 20141211
  Receipt Date: 20141211
  Transmission Date: 20150529
  Serious: Yes (Other)
  Sender: FDA-Public Use
  Company Number: US-INCYTE CORPORATION-2014IN002972

PATIENT
  Age: 74 Year
  Sex: Male

DRUGS (2)
  1. JAKAFI [Suspect]
     Active Substance: RUXOLITINIB
     Indication: MYELOPROLIFERATIVE DISORDER
     Dosage: 5 MG, BID
     Route: 048
  2. JAKAFI [Suspect]
     Active Substance: RUXOLITINIB
     Dosage: 10 MG, BID
     Route: 048

REACTIONS (2)
  - Haemoglobin decreased [Unknown]
  - Dyspnoea [Unknown]

NARRATIVE: CASE EVENT DATE: 20141006
